FAERS Safety Report 10357987 (Version 5)
Quarter: 2015Q2

REPORT INFORMATION
  Report Type: Spontaneous
  Country: US (occurrence: US)
  Receive Date: 20140801
  Receipt Date: 20150525
  Transmission Date: 20150821
  Serious: Yes (Other)
  Sender: FDA-Public Use
  Company Number: US-JNJFOC-20140413229

PATIENT
  Sex: Male

DRUGS (2)
  1. RISPERDAL [Suspect]
     Active Substance: RISPERIDONE
     Indication: ABNORMAL BEHAVIOUR
     Route: 048
     Dates: start: 20051020, end: 20110501
  2. RISPERDAL [Suspect]
     Active Substance: RISPERIDONE
     Indication: AUTISM SPECTRUM DISORDER
     Route: 048
     Dates: start: 20051020, end: 20110501

REACTIONS (5)
  - Gynaecomastia [Recovering/Resolving]
  - Emotional distress [Unknown]
  - Drug ineffective [Not Recovered/Not Resolved]
  - Hyperprolactinaemia [Unknown]
  - Obesity [Unknown]
